FAERS Safety Report 11705456 (Version 1)
Quarter: 2015Q4

REPORT INFORMATION
  Report Type: Spontaneous
  Country: GR (occurrence: GR)
  Receive Date: 20151106
  Receipt Date: 20151106
  Transmission Date: 20160304
  Serious: Yes (Hospitalization, Other)
  Sender: FDA-Public Use
  Company Number: GR-WATSON-2015-23505

PATIENT
  Age: 60 Year
  Sex: Male

DRUGS (7)
  1. FENTANYL (UNKNOWN) [Suspect]
     Active Substance: FENTANYL
     Dosage: 200 MCG OVER 5 TABLETS A DAY
     Route: 060
  2. CLONIDINE. [Concomitant]
     Active Substance: CLONIDINE
     Indication: ISCHAEMIC LIMB PAIN
     Dosage: 150 MCG, DAILY
     Route: 065
  3. DULOXETINE. [Concomitant]
     Active Substance: DULOXETINE
     Indication: ISCHAEMIC LIMB PAIN
     Dosage: 90 MG, DAILY
     Route: 065
  4. DICLOFENAC [Concomitant]
     Active Substance: DICLOFENAC
     Indication: ISCHAEMIC LIMB PAIN
     Dosage: 75 MG, DAILY
     Route: 065
  5. PARACETAMOL [Concomitant]
     Active Substance: ACETAMINOPHEN
     Indication: ISCHAEMIC LIMB PAIN
     Dosage: 3-4G/ 24H
     Route: 065
  6. FENTANYL (UNKNOWN) [Suspect]
     Active Substance: FENTANYL
     Indication: ISCHAEMIC LIMB PAIN
     Dosage: 200 MCG/HR, UNKNOWN
     Route: 062
  7. METHYLPREDNISOLONE. [Concomitant]
     Active Substance: METHYLPREDNISOLONE
     Indication: ISCHAEMIC LIMB PAIN
     Dosage: 16 MG, DAILY
     Route: 065

REACTIONS (3)
  - Respiratory depression [Recovered/Resolved]
  - Overdose [Recovered/Resolved]
  - Drug withdrawal syndrome [Recovered/Resolved]
